FAERS Safety Report 8811702 (Version 1)
Quarter: 2012Q4

REPORT INFORMATION
  Report Type: Spontaneous
  Country: US (occurrence: None)
  Receive Date: 20120925
  Receipt Date: 20120925
  Transmission Date: 20130627
  Serious: Yes (Life-Threatening, Hospitalization)
  Sender: FDA-Public Use
  Company Number: None

PATIENT
  Age: 24 Year
  Sex: Female
  Weight: 66.8 kg

DRUGS (2)
  1. RIFAMPIN [Suspect]
     Indication: LATENT TUBERCULOSIS
     Route: 048
     Dates: start: 20120815, end: 20120815
  2. RIFAMPIN [Suspect]
     Indication: LATENT TUBERCULOSIS
     Route: 048
     Dates: start: 20120922, end: 20120922

REACTIONS (12)
  - Vaginal haemorrhage [None]
  - Nausea [None]
  - Vomiting [None]
  - Treatment noncompliance [None]
  - Contusion [None]
  - Petechiae [None]
  - Ocular hyperaemia [None]
  - Gingival bleeding [None]
  - Epistaxis [None]
  - Blood urine present [None]
  - Haematochezia [None]
  - Platelet count decreased [None]
